FAERS Safety Report 6882512-4 (Version None)
Quarter: 2010Q3

REPORT INFORMATION
  Report Type: 
  Country: None (occurrence: None)
  Receive Date: 20100727
  Receipt Date: 20100714
  Transmission Date: 20110219
  Serious: Yes (Other)
  Sender: FDA-Public Use
  Company Number: DSU-2010-00023

PATIENT
  Sex: Female
  Weight: 68.0396 kg

DRUGS (11)
  1. BENICAR [Suspect]
     Indication: HYPERTENSION
     Dosage: 20 MG (20 MG, QD), PER ORAL; 40 MG 940 MG QD), PER ORAL
     Route: 048
     Dates: start: 20080201, end: 20080101
  2. BENICAR [Suspect]
     Indication: HYPERTENSION
     Dosage: 20 MG (20 MG, QD), PER ORAL; 40 MG 940 MG QD), PER ORAL
     Route: 048
     Dates: start: 20080102, end: 20080201
  3. NEORAL [Concomitant]
  4. PROCARDIA XL (NIFEDINE) (NIFEDIPINE) [Concomitant]
  5. PREMARIN (ESTROGENS CONJUGATED) (ESTROGENS CONJUGATED) [Concomitant]
  6. XANAX [Concomitant]
  7. ZOLOFT (SERTRALINE) (SERTRALINE) [Concomitant]
  8. KLONOPIN (CLONAZEPAM) (CLONAZEPAM) [Concomitant]
  9. PREDNISONE (PREDNISONE) (PREDNISONE) [Concomitant]
  10. PAXIL [Concomitant]
  11. CELLCEPT (MYCOPHENOLATE MOFETIL) (MYCOPHENOLATE MOFETIL) [Concomitant]

REACTIONS (13)
  - BLOOD ALKALINE PHOSPHATASE INCREASED [None]
  - BLOOD CHLORIDE INCREASED [None]
  - COMPLICATIONS OF TRANSPLANTED KIDNEY [None]
  - DIALYSIS [None]
  - HAEMATOCRIT DECREASED [None]
  - HAEMOGLOBIN DECREASED [None]
  - IMMUNOSUPPRESSANT DRUG LEVEL DECREASED [None]
  - KIDNEY FIBROSIS [None]
  - KIDNEY TRANSPLANT REJECTION [None]
  - LOW DENSITY LIPOPROTEIN INCREASED [None]
  - NEPHROSCLEROSIS [None]
  - RENAL FAILURE ACUTE [None]
  - WHITE BLOOD CELLS URINE POSITIVE [None]
